FAERS Safety Report 9276807 (Version 4)
Quarter: 2013Q3

REPORT INFORMATION
  Report Type: Report from Study
  Country: US (occurrence: US)
  Receive Date: 20130507
  Receipt Date: 20130729
  Transmission Date: 20140515
  Serious: Yes (Hospitalization)
  Sender: FDA-Public Use
  Company Number: US-ACTELION-A-US2010-43199

PATIENT
  Age: 76 Year
  Sex: Female

DRUGS (3)
  1. TRACLEER [Suspect]
     Indication: PULMONARY ARTERIAL HYPERTENSION
     Dosage: UNK
     Route: 048
     Dates: start: 201010
  2. REVATIO [Concomitant]
  3. COUMADIN [Concomitant]

REACTIONS (7)
  - Anaemia [Unknown]
  - Syncope [Unknown]
  - Upper limb fracture [Unknown]
  - Thrombosis [Unknown]
  - Fall [Unknown]
  - Rotator cuff syndrome [Unknown]
  - Muscle strain [Unknown]
